FAERS Safety Report 23428272 (Version 2)
Quarter: 2024Q1

REPORT INFORMATION
  Report Type: Spontaneous
  Country: GB (occurrence: GB)
  Receive Date: 20240122
  Receipt Date: 20240222
  Transmission Date: 20240410
  Serious: Yes (Hospitalization, Other)
  Sender: FDA-Public Use
  Company Number: GB-SANDOZ-SDZ2024GB006329

PATIENT
  Sex: Female

DRUGS (2)
  1. TACROLIMUS [Suspect]
     Active Substance: TACROLIMUS
     Indication: Immunosuppressant drug therapy
     Dosage: 1 MG, BID (STRENGTH: 1MG CAP 50)
     Route: 048
  2. PREDNISOLONE [Concomitant]
     Active Substance: PREDNISOLONE
     Indication: Product used for unknown indication
     Dosage: 5 MG TAB 28 STRIDE WITH BREAKFAST
     Route: 048

REACTIONS (4)
  - Oxygen saturation decreased [Unknown]
  - Dysphagia [Unknown]
  - Cough [Unknown]
  - Coma [Unknown]
